FAERS Safety Report 7782405-4 (Version None)
Quarter: 2011Q3

REPORT INFORMATION
  Report Type: 
  Country: None (occurrence: None)
  Receive Date: 20110927
  Receipt Date: 20110915
  Transmission Date: 20111222
  Serious: Yes (Other)
  Sender: FDA-Public Use
  Company Number: JP-ELI_LILLY_AND_COMPANY-JP201109005676

PATIENT
  Age: 46 Year
  Sex: Male

DRUGS (4)
  1. SEROQUEL [Concomitant]
     Dosage: 600 MG, QD
     Route: 048
     Dates: start: 20110905
  2. ZYPREXA [Suspect]
     Dosage: 10 MG, QD
     Route: 048
     Dates: start: 20110905
  3. ZYPREXA [Suspect]
     Dosage: 5 MG, QD
     Route: 048
     Dates: end: 20110904
  4. SEROQUEL [Concomitant]
     Dosage: 300 MG, QD
     Route: 048
     Dates: end: 20110904

REACTIONS (3)
  - NEUTROPHIL COUNT DECREASED [None]
  - SEPSIS [None]
  - WHITE BLOOD CELL COUNT DECREASED [None]
